FAERS Safety Report 6477462-1 (Version None)
Quarter: 2009Q4

REPORT INFORMATION
  Report Type: 
  Country: None (occurrence: None)
  Receive Date: 20091207
  Receipt Date: 20091110
  Transmission Date: 20100525
  Serious: Yes (Hospitalization)
  Sender: FDA-Public Use
  Company Number: FR-SANOFI-AVENTIS-2009SA001882

PATIENT
  Age: 65 Year
  Sex: Male

DRUGS (23)
  1. LASILIX [Suspect]
     Indication: DRUG USE FOR UNKNOWN INDICATION
     Route: 065
     Dates: start: 20090408, end: 20090408
  2. LASILIX [Suspect]
     Route: 065
     Dates: start: 20090409, end: 20090411
  3. LASILIX [Suspect]
     Route: 065
     Dates: start: 20090412, end: 20090414
  4. LASILIX [Suspect]
     Route: 065
     Dates: start: 20090415, end: 20090415
  5. LASILIX [Suspect]
     Route: 065
     Dates: start: 20090416, end: 20090417
  6. LASILIX [Suspect]
     Route: 065
     Dates: start: 20090418, end: 20090421
  7. LASILIX [Suspect]
     Route: 065
     Dates: start: 20090422, end: 20090423
  8. LASILIX [Suspect]
     Route: 065
     Dates: start: 20090424, end: 20090425
  9. LASILIX [Suspect]
     Route: 065
     Dates: start: 20090426, end: 20090429
  10. COVERSYL /FRA/ [Suspect]
     Indication: DRUG USE FOR UNKNOWN INDICATION
     Route: 048
     Dates: end: 20090404
  11. COVERSYL /FRA/ [Suspect]
     Route: 048
     Dates: start: 20090405, end: 20090406
  12. COVERSYL /FRA/ [Suspect]
     Route: 048
     Dates: start: 20090407, end: 20090422
  13. COVERSYL /FRA/ [Suspect]
  14. TRILEPTAL [Suspect]
     Indication: DRUG USE FOR UNKNOWN INDICATION
     Route: 048
     Dates: end: 20090422
  15. NEXIUM /UNK/ [Suspect]
     Indication: DRUG USE FOR UNKNOWN INDICATION
     Route: 048
  16. KARDEGIC [Concomitant]
     Indication: DRUG USE FOR UNKNOWN INDICATION
     Route: 048
     Dates: end: 20090407
  17. TAHOR [Concomitant]
     Indication: DRUG USE FOR UNKNOWN INDICATION
     Route: 048
  18. CARDENSIEL [Concomitant]
     Indication: DRUG USE FOR UNKNOWN INDICATION
     Route: 048
     Dates: end: 20090406
  19. CARDENSIEL [Concomitant]
     Route: 065
     Dates: start: 20090407
  20. ORBENIN CAP [Concomitant]
     Indication: DRUG USE FOR UNKNOWN INDICATION
     Route: 048
     Dates: end: 20090407
  21. ATARAX [Concomitant]
     Indication: DRUG USE FOR UNKNOWN INDICATION
     Route: 048
  22. LOVENOX [Concomitant]
     Indication: DRUG USE FOR UNKNOWN INDICATION
     Route: 058
     Dates: end: 20090407
  23. NOVONORM [Concomitant]
     Route: 048

REACTIONS (4)
  - BLOOD CREATININE INCREASED [None]
  - HYPERKALAEMIA [None]
  - HYPOCHLORAEMIA [None]
  - HYPONATRAEMIA [None]
